FAERS Safety Report 19032892 (Version 1)
Quarter: 2021Q1

REPORT INFORMATION
  Report Type: Spontaneous
  Country: US (occurrence: US)
  Receive Date: 20210319
  Receipt Date: 20210319
  Transmission Date: 20210420
  Serious: No
  Sender: FDA-Public Use
  Company Number: US-THERAPEUTICSMD-2021TMD01033

PATIENT
  Sex: Female
  Weight: 62.13 kg

DRUGS (7)
  1. IMVEXXY [Suspect]
     Active Substance: ESTRADIOL
     Indication: DYSPAREUNIA
  2. LIALDA [Concomitant]
     Active Substance: MESALAMINE
  3. UNSPECIFIED MEDICATION FOR ANKYLOSING SPONDYLITIS [Concomitant]
  4. HUMIRA [Concomitant]
     Active Substance: ADALIMUMAB
  5. IMVEXXY [Suspect]
     Active Substance: ESTRADIOL
     Indication: URINARY INCONTINENCE
     Dosage: 10 ?G, 2X/WEEK
     Route: 067
     Dates: start: 2018
  6. UNSPECIFIED MEDICATION FOR MICROSCOPIC COLITIS [Concomitant]
  7. CRESTOR [Concomitant]
     Active Substance: ROSUVASTATIN CALCIUM

REACTIONS (2)
  - Vaginal discharge [Not Recovered/Not Resolved]
  - Off label use [Not Recovered/Not Resolved]

NARRATIVE: CASE EVENT DATE: 2018
